FAERS Safety Report 5137724-7 (Version None)
Quarter: 2006Q4

REPORT INFORMATION
  Report Type: 
  Country: None (occurrence: None)
  Receive Date: 20061030
  Receipt Date: 20051208
  Transmission Date: 20070319
  Serious: No
  Sender: FDA-Public Use
  Company Number: US-GLAXOSMITHKLINE-A0586908A

PATIENT
  Age: 78 Year
  Sex: Female

DRUGS (9)
  1. ADVAIR HFA [Suspect]
     Indication: ASTHMA
     Dosage: 1PUFF TWICE PER DAY
     Route: 055
     Dates: start: 20051201
  2. SINGULAIR [Concomitant]
  3. DIOVAN [Concomitant]
  4. POTASSIUM ACETATE [Concomitant]
  5. NEURONTIN [Concomitant]
  6. VITAMIN [Concomitant]
  7. FISH OIL CAPSULES [Concomitant]
  8. FLONASE [Concomitant]
  9. NEXIUM [Concomitant]

REACTIONS (9)
  - DYSPNOEA [None]
  - HEADACHE [None]
  - HYPERSENSITIVITY [None]
  - INCREASED UPPER AIRWAY SECRETION [None]
  - MALAISE [None]
  - PARAESTHESIA [None]
  - PARAESTHESIA ORAL [None]
  - RESPIRATORY TRACT CONGESTION [None]
  - RHINORRHOEA [None]
